FAERS Safety Report 4314962-4 (Version None)
Quarter: 2004Q1

REPORT INFORMATION
  Report Type: 
  Country: None (occurrence: None)
  Receive Date: 20040309
  Receipt Date: 20040225
  Transmission Date: 20041129
  Serious: Yes (Hospitalization)
  Sender: FDA-Public Use
  Company Number: 2004IC000036

PATIENT
  Age: 54 Year
  Sex: Male

DRUGS (8)
  1. 5-FLUOROURACIL (FLUOROURACIL) [Suspect]
     Indication: OESOPHAGEAL CARCINOMA
     Dosage: 600 MG; INTRAVENOUS DRIP; 1200 MG; INTRAVENOUS DRIP
     Route: 041
     Dates: start: 20031020, end: 20031024
  2. 5-FLUOROURACIL (FLUOROURACIL) [Suspect]
     Indication: OESOPHAGEAL CARCINOMA
     Dosage: 600 MG; INTRAVENOUS DRIP; 1200 MG; INTRAVENOUS DRIP
     Route: 041
     Dates: start: 20031027, end: 20031031
  3. 5-FLUOROURACIL (FLUOROURACIL) [Suspect]
     Indication: OESOPHAGEAL CARCINOMA
     Dosage: 600 MG; INTRAVENOUS DRIP; 1200 MG; INTRAVENOUS DRIP
     Route: 041
     Dates: start: 20031201, end: 20031205
  4. 5-FLUOROURACIL (FLUOROURACIL) [Suspect]
     Indication: OESOPHAGEAL CARCINOMA
     Dosage: 600 MG; INTRAVENOUS DRIP; 1200 MG; INTRAVENOUS DRIP
     Route: 041
     Dates: start: 20040106, end: 20040110
  5. CISPLATIN [Concomitant]
  6. GASTER [Concomitant]
  7. KYTRIL [Concomitant]
  8. PRIMPERAN INJ [Concomitant]

REACTIONS (4)
  - DYSPHAGIA [None]
  - LEUKOENCEPHALOPATHY [None]
  - NUCLEAR MAGNETIC RESONANCE IMAGING BRAIN ABNORMAL [None]
  - SPEECH DISORDER [None]
